FAERS Safety Report 4503673-8 (Version None)
Quarter: 2004Q4

REPORT INFORMATION
  Report Type: 
  Country: None (occurrence: None)
  Receive Date: 20041115
  Receipt Date: 20041102
  Transmission Date: 20050328
  Serious: Yes (Hospitalization)
  Sender: FDA-Public Use
  Company Number: 2004-121959-NL

PATIENT
  Age: 69 Year
  Sex: Male

DRUGS (4)
  1. DANAPAROID SODIUM [Suspect]
     Dosage: INTRAVENOUS (NOS)
     Route: 042
     Dates: start: 20041006, end: 20041008
  2. NADROPARIN CALCIUM [Concomitant]
  3. CLOPIDOGREL BISULFATE [Concomitant]
  4. HEPARIN [Concomitant]

REACTIONS (3)
  - CONDITION AGGRAVATED [None]
  - THROMBOCYTOPENIA [None]
  - THROMBOSIS [None]
